FAERS Safety Report 8758968 (Version 3)
Quarter: 2012Q4

REPORT INFORMATION
  Report Type: 
  Country: US (occurrence: US)
  Receive Date: 20120829
  Receipt Date: 20120920
  Transmission Date: 20130627
  Serious: No
  Sender: FDA-Public Use
  Company Number: US-009507513-1208USA008614

PATIENT
  Age: 21 Year
  Weight: 86.17 kg

DRUGS (1)
  1. IMPLANON [Suspect]
     Dosage: 1 DF, UNK
     Route: 059
     Dates: start: 20120518, end: 20120822

REACTIONS (3)
  - Medical device complication [Unknown]
  - No adverse event [Unknown]
  - Device breakage [Unknown]
